FAERS Safety Report 6417763-6 (Version None)
Quarter: 2009Q4

REPORT INFORMATION
  Report Type: 
  Country: None (occurrence: None)
  Receive Date: 20091027
  Receipt Date: 20091027
  Transmission Date: 20100525
  Serious: Yes (Hospitalization)
  Sender: FDA-Public Use
  Company Number: None

PATIENT
  Sex: Female
  Weight: 90 kg

DRUGS (1)
  1. ACETADOTE [Suspect]
     Indication: OVERDOSE
     Dosage: 150MG/KG 1HR IV
     Route: 042
     Dates: start: 20091025

REACTIONS (2)
  - ANAPHYLACTOID REACTION [None]
  - CHEST PAIN [None]
